FAERS Safety Report 20730581 (Version 1)
Quarter: 2022Q2

REPORT INFORMATION
  Report Type: Spontaneous
  Country: US (occurrence: None)
  Receive Date: 20220419
  Receipt Date: 20220419
  Transmission Date: 20220721
  Serious: Yes (Life-Threatening, Other)
  Sender: FDA-Public Use
  Company Number: None

PATIENT
  Age: 55 Year
  Sex: Female
  Weight: 67.5 kg

DRUGS (7)
  1. CHLORTHALIDONE [Suspect]
     Active Substance: CHLORTHALIDONE
     Indication: Blood pressure increased
     Dosage: OTHER QUANTITY : 90 TABLET(S);?FREQUENCY : EVERY 12 HOURS;?
     Route: 048
     Dates: start: 20220218, end: 20220327
  2. SYNTHROID [Concomitant]
     Active Substance: LEVOTHYROXINE SODIUM
  3. LOSARTAN [Concomitant]
     Active Substance: LOSARTAN
  4. PRAMIPEXOLE [Concomitant]
     Active Substance: PRAMIPEXOLE
  5. ATORVASTATIN [Concomitant]
     Active Substance: ATORVASTATIN
  6. Vit D 2,000 [Concomitant]
  7. PREMARIN [Concomitant]
     Active Substance: ESTROGENS, CONJUGATED

REACTIONS (10)
  - Blood calcium decreased [None]
  - Myalgia [None]
  - Bone pain [None]
  - Arthralgia [None]
  - Fatigue [None]
  - Asthenia [None]
  - Paraesthesia [None]
  - Dizziness [None]
  - Constipation [None]
  - Blood potassium decreased [None]

NARRATIVE: CASE EVENT DATE: 20220218
